FAERS Safety Report 9156564 (Version 1)
Quarter: 2013Q1

REPORT INFORMATION
  Report Type: Spontaneous
  Country: US (occurrence: None)
  Receive Date: 20130208
  Receipt Date: 20130208
  Transmission Date: 20140127
  Serious: Yes (Hospitalization)
  Sender: FDA-Public Use
  Company Number: 13AE002

PATIENT
  Age: 19 Year
  Sex: Male

DRUGS (2)
  1. MULTI-SYMPTOM RELIEF NIGHTTIME [Suspect]
     Indication: OVERDOSE
     Dosage: OVERDOSE
     Dates: start: 20130118
  2. ANTI-DEPRESSENT [Concomitant]

REACTIONS (1)
  - Suicide attempt [None]
